FAERS Safety Report 7940349-9 (Version None)
Quarter: 2011Q4

REPORT INFORMATION
  Report Type: 
  Country: None (occurrence: None)
  Receive Date: 20111127
  Receipt Date: 20110921
  Transmission Date: 20120403
  Serious: No
  Sender: FDA-Public Use
  Company Number: US-TEVA-301886USA

PATIENT
  Sex: Female

DRUGS (10)
  1. BROVANA [Suspect]
  2. OMEPRAZOLE [Concomitant]
  3. FUROSEMIDE [Concomitant]
  4. BUDESONIDE [Interacting]
     Indication: CHRONIC OBSTRUCTIVE PULMONARY DISEASE
  5. COMBIVENT [Concomitant]
  6. ALPRAZOLAM [Concomitant]
  7. TIOPRONIN [Concomitant]
  8. SERTRALINE HYDROCHLORIDE [Concomitant]
  9. LORATADINE [Concomitant]
  10. ALENDRONATE SODIUM [Interacting]

REACTIONS (1)
  - STOMATITIS [None]
